FAERS Safety Report 6192570-0 (Version None)
Quarter: 2009Q2

REPORT INFORMATION
  Report Type: 
  Country: None (occurrence: None)
  Receive Date: 20090518
  Receipt Date: 20070924
  Transmission Date: 20091009
  Serious: Yes (Other)
  Sender: FDA-Public Use
  Company Number: US-ASTRAZENECA-2006UW22590

PATIENT
  Age: 16692 Day
  Sex: Female
  Weight: 79.4 kg

DRUGS (30)
  1. SEROQUEL [Suspect]
     Indication: DEPRESSION
     Dosage: 25 MG - 75 MG
     Route: 048
     Dates: start: 20010321
  2. SEROQUEL [Suspect]
     Indication: ANXIETY
     Dosage: 25 MG - 75 MG
     Route: 048
     Dates: start: 20010321
  3. SEROQUEL [Suspect]
     Route: 048
     Dates: start: 20010301, end: 20011201
  4. SEROQUEL [Suspect]
     Route: 048
     Dates: start: 20010301, end: 20011201
  5. AQUA-BAN MAXIMUM STRENGTH [Concomitant]
  6. RISPERDAL [Concomitant]
     Indication: DEPRESSION
     Dates: start: 20020101, end: 20030101
  7. RISPERDAL [Concomitant]
     Indication: ANXIETY
     Dates: start: 20020101, end: 20030101
  8. RISPERDAL [Concomitant]
     Route: 048
     Dates: start: 20030601
  9. RISPERDAL [Concomitant]
     Route: 048
     Dates: start: 20030601
  10. PROZAC [Concomitant]
     Indication: DEPRESSION
     Route: 048
     Dates: start: 20030601
  11. PROZAC [Concomitant]
     Indication: ANXIETY
     Route: 048
     Dates: start: 20030601
  12. PAXIL [Concomitant]
     Dosage: 20 MG - 25 MG
     Route: 048
  13. LISINOPRIL [Concomitant]
     Indication: HYPERTENSION
     Route: 048
     Dates: start: 20000101
  14. METOPROLOL [Concomitant]
     Dosage: 12.5 MG - 50 MG
     Route: 048
  15. HUMALOG [Concomitant]
     Dosage: INSULIN MIX 75/25 STRENGTH
     Route: 065
  16. LORAZEPAM [Concomitant]
     Route: 048
  17. IBUPROFEN [Concomitant]
     Route: 048
  18. CODEINE [Concomitant]
     Route: 048
  19. CEPHALEXIN [Concomitant]
     Route: 048
  20. HYDROXYZINE [Concomitant]
     Route: 048
  21. AMLACTIN [Concomitant]
     Route: 061
  22. EFFEXOR [Concomitant]
     Route: 048
  23. FERROUS SULFATE TAB [Concomitant]
     Route: 065
  24. DOCUSATE SODIUM [Concomitant]
     Route: 048
  25. LEVAQUIN [Concomitant]
     Route: 048
  26. CLINDAMYCIN HCL [Concomitant]
     Route: 048
  27. MEDROXYPROGESTERONE [Concomitant]
     Route: 048
  28. TRAZODONE HCL [Concomitant]
     Route: 048
  29. HYDROCHLOROTHIAZIDE [Concomitant]
     Indication: HYPERTENSION
     Route: 048
     Dates: start: 20000101
  30. TRIAMT [Concomitant]
     Route: 048

REACTIONS (9)
  - AFFECTIVE DISORDER [None]
  - AMBLYOPIA [None]
  - ANISOMETROPIA [None]
  - BUNION [None]
  - FOOT DEFORMITY [None]
  - ONYCHOMYCOSIS [None]
  - PANIC ATTACK [None]
  - PNEUMONIA VIRAL [None]
  - TYPE 1 DIABETES MELLITUS [None]
